FAERS Safety Report 12761713 (Version 2)
Quarter: 2016Q4

REPORT INFORMATION
  Report Type: Spontaneous
  Country: US (occurrence: US)
  Receive Date: 20160920
  Receipt Date: 20161004
  Transmission Date: 20170207
  Serious: No
  Sender: FDA-Public Use
  Company Number: US-PFIZER INC-2016433093

PATIENT
  Age: 75 Year
  Sex: Male
  Weight: 110 kg

DRUGS (11)
  1. ADVIL [Suspect]
     Active Substance: IBUPROFEN
     Indication: ALLERGY TO PLANTS
     Dosage: 800 MG, DAILY (4 TABLETS OF 200 MG)
     Route: 048
  2. ROBITUSSIN MAXIMUM STRENGTH COUGH [Suspect]
     Active Substance: DEXTROMETHORPHAN HYDROBROMIDE
     Indication: COUGH
  3. VITAMIN C [Concomitant]
     Active Substance: ASCORBIC ACID
     Dosage: 1 G, 1X/DAY IN THE MORNING
  4. ERYTHROMYCIN. [Concomitant]
     Active Substance: ERYTHROMYCIN
     Indication: ASTHMA
     Dosage: EVERY 4 HOURS
  5. ROBITUSSIN MAXIMUM STRENGTH COUGH [Suspect]
     Active Substance: DEXTROMETHORPHAN HYDROBROMIDE
     Indication: ALLERGY TO PLANTS
     Dosage: 20 ML, UNK
     Dates: start: 2001
  6. ROBITUSSIN MAXIMUM STRENGTH COUGH [Suspect]
     Active Substance: DEXTROMETHORPHAN HYDROBROMIDE
     Indication: ASTHMA
  7. ADVIL [Suspect]
     Active Substance: IBUPROFEN
     Indication: PULMONARY CONGESTION
  8. ROBITUSSIN MAXIMUM STRENGTH COUGH [Suspect]
     Active Substance: DEXTROMETHORPHAN HYDROBROMIDE
     Indication: HYPERSENSITIVITY
  9. ADVIL [Suspect]
     Active Substance: IBUPROFEN
     Indication: ASTHMA
  10. ADVIL [Suspect]
     Active Substance: IBUPROFEN
     Indication: HYPERSENSITIVITY
  11. ROBITUSSIN MAXIMUM STRENGTH COUGH [Suspect]
     Active Substance: DEXTROMETHORPHAN HYDROBROMIDE
     Indication: PULMONARY CONGESTION

REACTIONS (5)
  - Cough [Unknown]
  - Asthma [Unknown]
  - Musculoskeletal chest pain [Recovered/Resolved]
  - Insomnia [Unknown]
  - Product use issue [Unknown]

NARRATIVE: CASE EVENT DATE: 20160911
